FAERS Safety Report 23620184 (Version 1)
Quarter: 2024Q1

REPORT INFORMATION
  Report Type: Other
  Country: US (occurrence: None)
  Receive Date: 20240312
  Receipt Date: 20240312
  Transmission Date: 20240409
  Serious: Yes (Life-Threatening, Other)
  Sender: FDA-Public Use
  Company Number: US-ROCHE-3487176

PATIENT
  Sex: Female

DRUGS (2)
  1. RITUXAN [Suspect]
     Active Substance: RITUXIMAB
     Indication: Non-Hodgkin^s lymphoma
     Route: 065
  2. RITUXAN [Suspect]
     Active Substance: RITUXIMAB
     Indication: Diffuse large B-cell lymphoma

REACTIONS (16)
  - Skin haemorrhage [Unknown]
  - Pruritus [Unknown]
  - Mental impairment [Unknown]
  - Fatigue [Unknown]
  - Pyrexia [Unknown]
  - Anxiety [Unknown]
  - Starvation [Unknown]
  - Weight increased [Unknown]
  - Stress [Unknown]
  - Tooth loss [Unknown]
  - Stomatitis [Unknown]
  - Asthenia [Unknown]
  - Neoplasm malignant [Unknown]
  - Non-Hodgkin^s lymphoma [Unknown]
  - Therapy non-responder [Unknown]
  - Heart rate increased [Recovered/Resolved]

NARRATIVE: CASE EVENT DATE: 20131228
